FAERS Safety Report 7597266-6 (Version None)
Quarter: 2011Q3

REPORT INFORMATION
  Report Type: 
  Country: None (occurrence: None)
  Receive Date: 20110708
  Receipt Date: 20110125
  Transmission Date: 20111222
  Serious: No
  Sender: FDA-Public Use
  Company Number: US-GLAXOSMITHKLINE-A0909134A

PATIENT
  Age: 8 Year
  Sex: Male

DRUGS (2)
  1. FLOVENT [Suspect]
     Indication: EOSINOPHILIC OESOPHAGITIS
     Dosage: 2PUFF TWICE PER DAY
     Route: 048
     Dates: start: 20101001
  2. ZEGERID [Concomitant]

REACTIONS (7)
  - MALAISE [None]
  - ILL-DEFINED DISORDER [None]
  - FEELING HOT [None]
  - NASOPHARYNGITIS [None]
  - OROPHARYNGEAL PAIN [None]
  - HEADACHE [None]
  - COUGH [None]
